FAERS Safety Report 5493773-0 (Version None)
Quarter: 2007Q4

REPORT INFORMATION
  Report Type: 
  Country: None (occurrence: None)
  Receive Date: 20071023
  Receipt Date: 20071016
  Transmission Date: 20080405
  Serious: Yes (Other)
  Sender: FDA-Public Use
  Company Number: GB-BOEHRINGER INGELHEIM PHARMACEUTICALS, INC.-2007-BP-23091YA

PATIENT
  Age: 67 Year
  Sex: Male
  Weight: 101 kg

DRUGS (14)
  1. TAMSULOSIN HCL [Suspect]
     Indication: URINARY TRACT DISORDER
     Route: 048
     Dates: start: 20060808
  2. XENICAL [Suspect]
     Indication: OBESITY
     Route: 048
     Dates: start: 20070613
  3. AMILORIDE HYDROCHLORIDE [Concomitant]
  4. BISOPROLOL FUMARATE [Concomitant]
  5. CANDESARTAN CILEXETIL [Concomitant]
  6. FERROUS SULFATE TAB [Concomitant]
  7. FUROSEMIDE [Concomitant]
  8. FYBOGEL [Concomitant]
  9. LACTULOSE [Concomitant]
  10. LANSOPRAZOLE [Concomitant]
  11. MIXTARD HUMAN 70/30 [Concomitant]
     Indication: DIABETES MELLITUS
  12. NITROMIN [Concomitant]
  13. SIMVASTATIN [Concomitant]
  14. WARFARIN SODIUM [Concomitant]
     Indication: ATRIAL FIBRILLATION
     Dates: start: 20060615

REACTIONS (3)
  - DIZZINESS [None]
  - HYPOGLYCAEMIA [None]
  - INTERNATIONAL NORMALISED RATIO INCREASED [None]
